FAERS Safety Report 19099289 (Version 1)
Quarter: 2021Q2

REPORT INFORMATION
  Report Type: Spontaneous
  Country: US (occurrence: US)
  Receive Date: 20210406
  Receipt Date: 20210406
  Transmission Date: 20210717
  Serious: No
  Sender: FDA-Public Use
  Company Number: US-ASTRAZENECA-2021A236968

PATIENT
  Age: 847 Month
  Sex: Female
  Weight: 66.7 kg

DRUGS (3)
  1. TUDORZA PRESSAIR [Suspect]
     Active Substance: ACLIDINIUM BROMIDE
     Indication: CHRONIC OBSTRUCTIVE PULMONARY DISEASE
     Dosage: 400 MCG 1 PUFF IN MORNING AND 1 PUFF IN THE EVENING
     Route: 055
  2. TUDORZA PRESSAIR [Suspect]
     Active Substance: ACLIDINIUM BROMIDE
     Indication: ASTHMA
     Dosage: 400 MCG 1 PUFF IN MORNING AND 1 PUFF IN THE EVENING
     Route: 055
  3. TUDORZA PRESSAIR [Suspect]
     Active Substance: ACLIDINIUM BROMIDE
     Indication: EMPHYSEMA
     Dosage: 400 MCG 1 PUFF IN MORNING AND 1 PUFF IN THE EVENING
     Route: 055

REACTIONS (11)
  - Immune system disorder [Unknown]
  - Depression [Unknown]
  - Pneumonia [Unknown]
  - Eye disorder [Unknown]
  - Intentional product misuse [Unknown]
  - Anxiety [Unknown]
  - Illness [Unknown]
  - Nervousness [Unknown]
  - Product dose omission issue [Unknown]
  - Device defective [Unknown]
  - Adverse drug reaction [Unknown]

NARRATIVE: CASE EVENT DATE: 202101
